FAERS Safety Report 25876117 (Version 1)
Quarter: 2025Q4

REPORT INFORMATION
  Report Type: Spontaneous
  Country: EU (occurrence: EU)
  Receive Date: 20251003
  Receipt Date: 20251003
  Transmission Date: 20260117
  Serious: Yes (Other)
  Sender: ASCENDIS PHARMA
  Company Number: EU-ASCENDIS PHARMA-2025EU012064

PATIENT

DRUGS (1)
  1. YORVIPATH [Suspect]
     Active Substance: PALOPEGTERIPARATIDE
     Indication: Hypoparathyroidism
     Dosage: 21 MICROGRAM, QD
     Route: 058
     Dates: start: 202412

REACTIONS (1)
  - Pericarditis [Recovering/Resolving]

NARRATIVE: CASE EVENT DATE: 20250906
